FAERS Safety Report 19259505 (Version 2)
Quarter: 2021Q3

REPORT INFORMATION
  Report Type: Spontaneous
  Country: US (occurrence: US)
  Receive Date: 20210514
  Receipt Date: 20210804
  Transmission Date: 20211014
  Serious: No
  Sender: FDA-Public Use
  Company Number: US-PFIZER INC-2021345433

PATIENT
  Age: 72 Year
  Sex: Male

DRUGS (2)
  1. VYNDAQEL [Suspect]
     Active Substance: TAFAMIDIS MEGLUMINE
     Dosage: UNK
     Dates: start: 20201218
  2. VYNDAMAX [Suspect]
     Active Substance: TAFAMIDIS
     Dosage: 61 MG
     Dates: start: 20200120, end: 20210621

REACTIONS (7)
  - Dizziness [Unknown]
  - Insomnia [Unknown]
  - Balance disorder [Unknown]
  - Headache [Unknown]
  - Tremor [Unknown]
  - Vision blurred [Unknown]
  - Nervousness [Unknown]
